FAERS Safety Report 4672604-2 (Version None)
Quarter: 2005Q2

REPORT INFORMATION
  Report Type: 
  Country: None (occurrence: None)
  Receive Date: 20050524
  Receipt Date: 20050516
  Transmission Date: 20051028
  Serious: Yes (Hospitalization, Disabling)
  Sender: FDA-Public Use
  Company Number: HCM-0079

PATIENT
  Age: 79 Year
  Sex: Male

DRUGS (6)
  1. HYCAMTIN [Suspect]
     Indication: SMALL CELL LUNG CANCER STAGE UNSPECIFIED
     Dosage: 1.1MG PER DAY
     Route: 042
     Dates: start: 20040127, end: 20040131
  2. NICORANDIL [Concomitant]
     Dosage: 10MG PER DAY
     Route: 048
     Dates: start: 20040201, end: 20040219
  3. CARBOCISTEINE [Concomitant]
     Dosage: 1500MG PER DAY
     Route: 048
     Dates: start: 20040201, end: 20040219
  4. AZULENE SULFONATE SODIUM [Concomitant]
     Dosage: 2G PER DAY
     Route: 048
     Dates: start: 20040201, end: 20040219
  5. LEVOFLOXACIN [Concomitant]
     Dosage: 300MG PER DAY
     Route: 048
     Dates: start: 20040201, end: 20040219
  6. GRANULOCYTE COLONY STIMULATING FACTOR [Concomitant]
     Dosage: 75UG PER DAY
     Route: 048
     Dates: start: 20040201, end: 20040219

REACTIONS (9)
  - ANAEMIA [None]
  - BLOOD BILIRUBIN DECREASED [None]
  - CONDITION AGGRAVATED [None]
  - HAEMOGLOBIN DECREASED [None]
  - HYPOPROTEINAEMIA [None]
  - PLATELET COUNT DECREASED [None]
  - PROTEIN TOTAL DECREASED [None]
  - RED BLOOD CELL COUNT DECREASED [None]
  - THROMBOCYTOPENIA [None]
